FAERS Safety Report 8260837-8 (Version None)
Quarter: 2012Q2

REPORT INFORMATION
  Report Type: 
  Country: None (occurrence: None)
  Receive Date: 20120405
  Receipt Date: 20120328
  Transmission Date: 20120825
  Serious: Yes (Other)
  Sender: FDA-Public Use
  Company Number: US-AMGEN-USASP2012020030

PATIENT
  Age: 55 Year
  Sex: Male

DRUGS (7)
  1. IBUPROFEN [Concomitant]
     Dosage: UNK
  2. MISOPROSTOL [Concomitant]
     Dosage: UNK
  3. FOLIC ACID [Concomitant]
     Dosage: UNK
  4. NYSTATIN [Concomitant]
     Dosage: UNK
  5. CREON [Concomitant]
     Dosage: UNK
  6. ENBREL [Suspect]
     Indication: PSORIATIC ARTHROPATHY
     Dosage: 25 MG, UNK
  7. DOCUSATE [Concomitant]
     Dosage: UNK

REACTIONS (1)
  - PANCREATIC CARCINOMA [None]
